FAERS Safety Report 5955173-6 (Version None)
Quarter: 2008Q4

REPORT INFORMATION
  Report Type: 
  Country: None (occurrence: None)
  Receive Date: 20081112
  Receipt Date: 20081031
  Transmission Date: 20090506
  Serious: Yes (Other)
  Sender: FDA-Public Use
  Company Number: 1000001629

PATIENT
  Age: 33 Year
  Sex: Male

DRUGS (7)
  1. CELEXA [Suspect]
  2. EFFEXOR [Suspect]
     Dosage: 225 MG (75 MG, 3 IN 1 D), ORAL
     Route: 048
  3. CLOBAZAM (TABLETS) [Concomitant]
  4. LYRICA [Concomitant]
  5. SEROQUEL [Concomitant]
  6. TEGRETOL [Concomitant]
  7. TOPAMAX [Concomitant]

REACTIONS (1)
  - PSYCHOTIC DISORDER [None]
